FAERS Safety Report 5020432-0 (Version None)
Quarter: 2006Q2

REPORT INFORMATION
  Report Type: 
  Country: None (occurrence: None)
  Receive Date: 20060602
  Receipt Date: 20060518
  Transmission Date: 20061013
  Serious: Yes (Life-Threatening, Hospitalization)
  Sender: FDA-Public Use
  Company Number: 253453

PATIENT
  Age: 46 Year
  Sex: Male
  Weight: 128.1 kg

DRUGS (16)
  1. INSULATARD FLEXPEN HM(GE)(INSULIN HUMAN) SUSPENSION FOR INJECTION, 100 [Suspect]
     Indication: INSULIN-REQUIRING TYPE II DIABETES MELLITUS
     Dosage: 70 IU, QD, SUBCUTANEOUS
     Route: 058
     Dates: start: 20030701
  2. BLINDED (BLINDED) [Concomitant]
  3. BLINDED (BLINDED) [Concomitant]
  4. ZOCOR [Concomitant]
  5. ZOLOFT [Concomitant]
  6. CORODIL (ENALAPRIL) [Concomitant]
  7. PLAVIX [Concomitant]
  8. COMBIVENT /01033501/ (SALBUTAMOL, IPRATROPIUM BROMIDE) [Concomitant]
  9. BRICANYL [Concomitant]
  10. FORTAMOL (PARACETAMOL, CODEINE) [Concomitant]
  11. DICILLIN (DICLOXACILLIN SODIUM MONOHYDRATE) [Concomitant]
  12. PONDOCILLIN /00272501/ (PIVAMPICILLIN) [Concomitant]
  13. ERYCIN (ERYTHROMYCIN) [Concomitant]
  14. MAGNYL /00002701/ (ACETYLSALICYLIC ACID) [Concomitant]
  15. NITROGLYCERIN [Concomitant]
  16. MORFIN /00036301/ (MORPHINE) [Concomitant]

REACTIONS (2)
  - HYPOGLYCAEMIA [None]
  - NEPHROPATHY [None]
